FAERS Safety Report 23440974 (Version 2)
Quarter: 2024Q1

REPORT INFORMATION
  Report Type: Spontaneous
  Country: US (occurrence: US)
  Receive Date: 20240125
  Receipt Date: 20240220
  Transmission Date: 20240410
  Serious: Yes (Other)
  Sender: FDA-Public Use
  Company Number: US-GLAXOSMITHKLINE-US2024AMR009076

PATIENT

DRUGS (1)
  1. ALBUTEROL SULFATE [Suspect]
     Active Substance: ALBUTEROL SULFATE
     Indication: Asthma
     Dosage: UNK 90 MCG, 18G/200 METERED

REACTIONS (4)
  - Lung operation [Unknown]
  - Drug ineffective [Unknown]
  - Device use issue [Unknown]
  - Product complaint [Unknown]
